FAERS Safety Report 8824517 (Version 2)
Quarter: 2012Q4

REPORT INFORMATION
  Report Type: 
  Country: US (occurrence: US)
  Receive Date: 20121004
  Receipt Date: 20121025
  Transmission Date: 20130627
  Serious: No
  Sender: FDA-Public Use
  Company Number: US-PFIZER INC-2012243506

PATIENT
  Age: 52 Year
  Sex: Female
  Weight: 104 kg

DRUGS (2)
  1. CHANTIX [Suspect]
     Indication: SMOKING CESSATION THERAPY
     Dosage: 5 mg, 1x/day
     Route: 048
     Dates: start: 20120927
  2. DILAUDID [Concomitant]
     Indication: PAIN
     Dosage: UNK
     Route: 037

REACTIONS (2)
  - Nausea [Not Recovered/Not Resolved]
  - Cold sweat [Not Recovered/Not Resolved]
